FAERS Safety Report 9594549 (Version 1)
Quarter: 2013Q3

REPORT INFORMATION
  Report Type: Spontaneous
  Country: US (occurrence: None)
  Receive Date: 20130927
  Receipt Date: 20130927
  Transmission Date: 20140515
  Serious: Yes (Other)
  Sender: FDA-Public Use
  Company Number: CABO-13002957

PATIENT
  Age: 53 Year
  Sex: Male
  Weight: 81.5 kg

DRUGS (1)
  1. COMETRIQ [Suspect]
     Indication: THYROID CANCER
     Dosage: 140 MG, QD, ORAL
     Route: 048
     Dates: start: 20130628, end: 20130722

REACTIONS (7)
  - Cough [None]
  - Dry throat [None]
  - Ageusia [None]
  - Dysphonia [None]
  - Glossodynia [None]
  - Pain in extremity [None]
  - Rash [None]
